FAERS Safety Report 5294049-7 (Version None)
Quarter: 2007Q2

REPORT INFORMATION
  Report Type: 
  Country: None (occurrence: None)
  Receive Date: 20070404
  Receipt Date: 20070323
  Transmission Date: 20071010
  Serious: Yes (Hospitalization, Other)
  Sender: FDA-Public Use
  Company Number: 2007312854

PATIENT
  Age: 47 Year
  Sex: Female
  Weight: 111.6 kg

DRUGS (5)
  1. BENADRYL [Suspect]
     Indication: FOOD ALLERGY
     Dosage: 2 STRIPS THEN ONE STRIP A FEW DAYS LATER, ORAL
     Route: 048
     Dates: end: 20070101
  2. EPIPEN [Suspect]
     Indication: HYPERSENSITIVITY
     Dates: start: 20070226
  3. ASPIRIN [Concomitant]
  4. LIPITOR [Concomitant]
  5. VITAMIN C (VITAMIN C) [Concomitant]

REACTIONS (9)
  - CONDITION AGGRAVATED [None]
  - DRUG INEFFECTIVE [None]
  - DYSPHAGIA [None]
  - EAR DISORDER [None]
  - FOOD ALLERGY [None]
  - HYPOAESTHESIA ORAL [None]
  - NAUSEA [None]
  - THROAT TIGHTNESS [None]
  - VOMITING [None]
